FAERS Safety Report 4619160-2 (Version None)
Quarter: 2005Q1

REPORT INFORMATION
  Report Type: 
  Country: None (occurrence: None)
  Receive Date: 20050325
  Receipt Date: 20050315
  Transmission Date: 20050727
  Serious: Yes (Hospitalization)
  Sender: FDA-Public Use
  Company Number: 2005026387

PATIENT
  Age: 37 Year
  Sex: Male
  Weight: 66 kg

DRUGS (5)
  1. LAMIVUDINE [Suspect]
     Indication: HIV INFECTION
     Dosage: 150MG TWICE PER DAY
     Route: 048
     Dates: start: 19990610
  2. TENOFOVIR [Suspect]
     Indication: HIV INFECTION
     Dosage: 245MG PER DAY
     Route: 048
     Dates: start: 20030805
  3. CAPRAVIRINE [Suspect]
     Indication: HIV INFECTION
     Dosage: 700MG TWICE PER DAY
     Route: 048
     Dates: start: 20040709
  4. KALETRA [Suspect]
     Indication: HIV INFECTION
     Dosage: 4CAP TWICE PER DAY
     Route: 048
     Dates: start: 20030805
  5. LOPERAMIDE HCL [Concomitant]
     Indication: DIARRHOEA
     Dates: start: 20030909

REACTIONS (9)
  - ALANINE AMINOTRANSFERASE INCREASED [None]
  - ANOREXIA [None]
  - ASPARTATE AMINOTRANSFERASE INCREASED [None]
  - BACK PAIN [None]
  - CHROMATURIA [None]
  - HEPATITIS A [None]
  - HEPATITIS VIRAL [None]
  - LETHARGY [None]
  - VOMITING [None]
